FAERS Safety Report 10592759 (Version 1)
Quarter: 2014Q4

REPORT INFORMATION
  Report Type: Spontaneous
  Country: IT (occurrence: None)
  Receive Date: 20141117
  Receipt Date: 20141117
  Transmission Date: 20150529
  Serious: Yes (Other)
  Sender: FDA-Public Use
  Company Number: AE-SPE-2014-031

PATIENT
  Age: 37 Year
  Sex: Female

DRUGS (2)
  1. FLUIBRON [Suspect]
     Active Substance: AMBROXOL HYDROCHLORIDE
     Indication: COUGH
     Route: 048
     Dates: start: 20140912, end: 20140912
  2. GIASION [Suspect]
     Active Substance: CEFDITOREN PIVOXIL
     Indication: TONSILLITIS
     Route: 048
     Dates: start: 20140912, end: 20140912

REACTIONS (1)
  - Tongue disorder [None]

NARRATIVE: CASE EVENT DATE: 20140912
